FAERS Safety Report 4332338-0 (Version None)
Quarter: 2004Q2

REPORT INFORMATION
  Report Type: 
  Country: None (occurrence: None)
  Receive Date: 20040401
  Receipt Date: 20040315
  Transmission Date: 20050107
  Serious: Yes (Hospitalization)
  Sender: FDA-Public Use
  Company Number: DSA_24009_2004

PATIENT
  Age: 34 Year
  Sex: Female

DRUGS (2)
  1. LORAZEPAM [Suspect]
     Dates: start: 20040212, end: 20040212
  2. RED WINE [Suspect]
     Dosage: 2.5 BOTTLE ONCE PO
     Route: 048
     Dates: start: 20020212, end: 20040212

REACTIONS (4)
  - ALCOHOL USE [None]
  - BOWEL SOUNDS ABNORMAL [None]
  - INTENTIONAL OVERDOSE [None]
  - SOMNOLENCE [None]
